FAERS Safety Report 8494094-4 (Version None)
Quarter: 2012Q3

REPORT INFORMATION
  Report Type: 
  Country: None (occurrence: None)
  Receive Date: 20120702
  Receipt Date: 20120702
  Transmission Date: 20120928
  Serious: Yes (Life-Threatening, Hospitalization)
  Sender: FDA-Public Use
  Company Number: None

PATIENT
  Age: 42 Year
  Sex: Male
  Weight: 86.1834 kg

DRUGS (1)
  1. MOBIC [Suspect]
     Indication: INTERVERTEBRAL DISC PROTRUSION
     Dosage: 7.5 MG DAILY P.O.
     Route: 048
     Dates: start: 20120312, end: 20120317

REACTIONS (7)
  - HYPOVOLAEMIA [None]
  - HAEMOGLOBIN DECREASED [None]
  - INTERVERTEBRAL DISC PROTRUSION [None]
  - HAEMORRHAGE [None]
  - SYNCOPE [None]
  - TACHYCARDIA [None]
  - HAEMATOCRIT DECREASED [None]
